FAERS Safety Report 23879647 (Version 1)
Quarter: 2024Q2

REPORT INFORMATION
  Report Type: Other
  Country: FR (occurrence: None)
  Receive Date: 20240521
  Receipt Date: 20240521
  Transmission Date: 20240716
  Serious: Yes (Hospitalization)
  Sender: FDA-Public Use
  Company Number: FR-ROCHE-3566184

PATIENT
  Age: 74 Year
  Sex: Female

DRUGS (2)
  1. RITUXIMAB [Suspect]
     Active Substance: RITUXIMAB
     Indication: Neuromyelitis optica spectrum disorder
     Route: 065
  2. OXYGEN [Concomitant]
     Active Substance: OXYGEN

REACTIONS (3)
  - COVID-19 [Recovered/Resolved]
  - Vaccination failure [Recovered/Resolved]
  - Vaccine interaction [Unknown]
